FAERS Safety Report 12881569 (Version 3)
Quarter: 2017Q3

REPORT INFORMATION
  Report Type: Spontaneous
  Country: US (occurrence: US)
  Receive Date: 20161025
  Receipt Date: 20170812
  Transmission Date: 20171127
  Serious: No
  Sender: FDA-Public Use
  Company Number: US-JNJFOC-20161015287

PATIENT
  Sex: Male

DRUGS (16)
  1. RISPERDAL [Suspect]
     Active Substance: RISPERIDONE
     Indication: BIPOLAR DISORDER
     Dosage: 1MG,3MG
     Route: 048
     Dates: start: 2005, end: 2006
  2. RISPERDAL [Suspect]
     Active Substance: RISPERIDONE
     Indication: ANTISOCIAL BEHAVIOUR
     Dosage: 1MG,3MG
     Route: 048
     Dates: start: 2005, end: 2006
  3. RISPERDAL [Suspect]
     Active Substance: RISPERIDONE
     Indication: BIPOLAR DISORDER
     Route: 048
     Dates: start: 2010
  4. RISPERDAL [Suspect]
     Active Substance: RISPERIDONE
     Indication: MENTAL DISORDER
     Route: 048
     Dates: start: 2011, end: 2011
  5. RISPERDAL [Suspect]
     Active Substance: RISPERIDONE
     Indication: STRESS
     Route: 048
     Dates: start: 2011, end: 2011
  6. RISPERDAL [Suspect]
     Active Substance: RISPERIDONE
     Indication: BIPOLAR DISORDER
     Route: 048
     Dates: start: 2011, end: 2011
  7. RISPERDAL [Suspect]
     Active Substance: RISPERIDONE
     Indication: OPPOSITIONAL DEFIANT DISORDER
     Route: 048
     Dates: start: 2010
  8. RISPERIDONE. [Suspect]
     Active Substance: RISPERIDONE
     Indication: PRODUCT USED FOR UNKNOWN INDICATION
     Route: 048
  9. RISPERDAL [Suspect]
     Active Substance: RISPERIDONE
     Indication: MENTAL DISORDER
     Dosage: 1MG,3MG
     Route: 048
     Dates: start: 2005, end: 2006
  10. RISPERDAL [Suspect]
     Active Substance: RISPERIDONE
     Indication: STRESS
     Dosage: 1MG,3MG
     Route: 048
     Dates: start: 2005, end: 2006
  11. RISPERDAL [Suspect]
     Active Substance: RISPERIDONE
     Indication: MENTAL DISORDER
     Route: 048
     Dates: start: 2010
  12. RISPERDAL [Suspect]
     Active Substance: RISPERIDONE
     Indication: OPPOSITIONAL DEFIANT DISORDER
     Route: 048
     Dates: start: 2011, end: 2011
  13. RISPERDAL [Suspect]
     Active Substance: RISPERIDONE
     Indication: STRESS
     Route: 048
     Dates: start: 2010
  14. RISPERDAL [Suspect]
     Active Substance: RISPERIDONE
     Indication: ANTISOCIAL BEHAVIOUR
     Route: 048
     Dates: start: 2010
  15. RISPERDAL [Suspect]
     Active Substance: RISPERIDONE
     Indication: ANTISOCIAL BEHAVIOUR
     Route: 048
     Dates: start: 2011, end: 2011
  16. RISPERDAL [Suspect]
     Active Substance: RISPERIDONE
     Indication: OPPOSITIONAL DEFIANT DISORDER
     Dosage: 1MG,3MG
     Route: 048
     Dates: start: 2005, end: 2006

REACTIONS (2)
  - Gynaecomastia [Unknown]
  - Abnormal weight gain [Unknown]
